FAERS Safety Report 16461253 (Version 2)
Quarter: 2019Q3

REPORT INFORMATION
  Report Type: Spontaneous
  Country: US (occurrence: US)
  Receive Date: 20190620
  Receipt Date: 20190722
  Transmission Date: 20191004
  Serious: Yes (Hospitalization)
  Sender: FDA-Public Use
  Company Number: US-ACTELION-A-US2019-191827

PATIENT
  Sex: Female

DRUGS (1)
  1. OPSUMIT [Suspect]
     Active Substance: MACITENTAN
     Indication: PULMONARY ARTERIAL HYPERTENSION
     Dosage: 10 MG, QD
     Route: 048
     Dates: start: 20181224

REACTIONS (6)
  - Herpes zoster [Unknown]
  - Cerebrovascular accident [Unknown]
  - Loss of consciousness [Unknown]
  - White blood cell count increased [Unknown]
  - Pneumonia [Unknown]
  - Inflammation [Unknown]
